FAERS Safety Report 9655231 (Version 2)
Quarter: 2013Q4

REPORT INFORMATION
  Report Type: Spontaneous
  Country: US (occurrence: US)
  Receive Date: 20131029
  Receipt Date: 20131029
  Transmission Date: 20140711
  Serious: No
  Sender: FDA-Public Use
  Company Number: US-PURDUE-USA-2012-0085305

PATIENT
  Age: 56 Year
  Sex: Male
  Weight: 215 kg

DRUGS (3)
  1. OXYCONTIN (NDA 22-272) [Suspect]
     Indication: INTERVERTEBRAL DISC PROTRUSION
     Dosage: 20 MG, BID
  2. OXYCONTIN (NDA 22-272) [Suspect]
     Indication: HEADACHE
  3. OXYCONTIN (NDA 22-272) [Suspect]
     Indication: STRESS

REACTIONS (1)
  - Intentional drug misuse [Unknown]
